FAERS Safety Report 25100705 (Version 1)
Quarter: 2025Q1

REPORT INFORMATION
  Report Type: Spontaneous
  Country: FR (occurrence: PT)
  Receive Date: 20250320
  Receipt Date: 20250320
  Transmission Date: 20250408
  Serious: Yes (Other)
  Sender: ASTELLAS
  Company Number: FR-ASTELLAS-2025-AER-014994

PATIENT
  Sex: Male

DRUGS (1)
  1. XTANDI [Suspect]
     Active Substance: ENZALUTAMIDE
     Indication: Prostate cancer
     Dosage: 4 TABLET
     Route: 048
     Dates: start: 202502

REACTIONS (7)
  - Depressed level of consciousness [Recovering/Resolving]
  - Infection [Recovering/Resolving]
  - Swelling face [Recovering/Resolving]
  - Condition aggravated [Recovering/Resolving]
  - Rash erythematous [Recovering/Resolving]
  - Pruritus [Recovering/Resolving]
  - Malaise [Recovering/Resolving]

NARRATIVE: CASE EVENT DATE: 20250301
